FAERS Safety Report 6193349-6 (Version None)
Quarter: 2009Q2

REPORT INFORMATION
  Report Type: 
  Country: None (occurrence: None)
  Receive Date: 20090514
  Receipt Date: 20090514
  Transmission Date: 20091009
  Serious: Yes (Death, Hospitalization)
  Sender: FDA-Public Use
  Company Number: None

PATIENT
  Age: 68 Year
  Sex: Female
  Weight: 47.5 kg

DRUGS (2)
  1. OXALIPLATIN [Suspect]
     Indication: RECTAL CANCER
     Dosage: 75 MGS WEEKLY X 3 WEEKS IV DRIP
     Route: 041
     Dates: start: 20090413, end: 20090427
  2. CAPECITABINE 850 MG/M2MG [Suspect]
     Dosage: 100 MGS DAILY X 3 WEEKS BUCCAL
     Route: 002
     Dates: start: 20090413, end: 20090427

REACTIONS (2)
  - DEHYDRATION [None]
  - PNEUMONIA ASPIRATION [None]
